FAERS Safety Report 5986436-6 (Version None)
Quarter: 2008Q4

REPORT INFORMATION
  Report Type: 
  Country: None (occurrence: None)
  Receive Date: 20081209
  Receipt Date: 20081128
  Transmission Date: 20090506
  Serious: Yes (Hospitalization)
  Sender: FDA-Public Use
  Company Number: DE-BIOGENIDEC-2008BI030565

PATIENT
  Age: 41 Year
  Sex: Female
  Weight: 55 kg

DRUGS (8)
  1. TYSABRI [Suspect]
     Indication: MULTIPLE SCLEROSIS
     Route: 042
     Dates: start: 20070208
  2. BECLOMETHASON [Concomitant]
     Indication: DYSPNOEA
     Route: 055
     Dates: start: 20080315
  3. FORMOTEROL FUMARATE [Concomitant]
     Indication: DYSPNOEA
     Route: 055
     Dates: start: 20080315
  4. ALBUTEROL SULFATE [Concomitant]
     Indication: DYSPNOEA
     Route: 055
     Dates: start: 20080315
  5. OMEPRAZOLE [Concomitant]
     Indication: GASTRITIS
     Route: 048
     Dates: start: 20071101, end: 20081101
  6. PANCREATIC ENZYME [Concomitant]
     Indication: PANCREATIC INSUFFICIENCY
     Route: 048
  7. NSAIDS [Concomitant]
  8. ACETAMINOPHEN [Concomitant]

REACTIONS (1)
  - CARDIAC DISORDER [None]
